FAERS Safety Report 8821832 (Version 1)
Quarter: 2012Q4

REPORT INFORMATION
  Report Type: 
  Country: FR (occurrence: FR)
  Receive Date: 20121002
  Receipt Date: 20121002
  Transmission Date: 20130627
  Serious: Yes (Other)
  Sender: FDA-Public Use
  Company Number: FR-BRISTOL-MYERS SQUIBB COMPANY-16997348

PATIENT
  Sex: Male

DRUGS (2)
  1. BARACLUDE [Suspect]
  2. AMINOSALICYLIC ACID [Concomitant]
     Indication: TUBERCULOSIS

REACTIONS (2)
  - Cell death [Unknown]
  - Alanine aminotransferase increased [Unknown]
